FAERS Safety Report 18102508 (Version 4)
Quarter: 2020Q3

REPORT INFORMATION
  Report Type: Spontaneous
  Country: US (occurrence: US)
  Receive Date: 20200803
  Receipt Date: 20200918
  Transmission Date: 20201103
  Serious: No
  Sender: FDA-Public Use
  Company Number: US-GLAXOSMITHKLINE-US2020AMR143055

PATIENT
  Sex: Female

DRUGS (2)
  1. ZEJULA [Suspect]
     Active Substance: NIRAPARIB
     Dosage: 200 MG, QD
     Route: 048
     Dates: start: 20200702
  2. ZEJULA [Suspect]
     Active Substance: NIRAPARIB
     Indication: OVARIAN CANCER
     Dosage: 200 MG, QD
     Dates: start: 20200627

REACTIONS (10)
  - Blood potassium decreased [Unknown]
  - Product dose omission in error [Unknown]
  - Feeling abnormal [Unknown]
  - Nasal discomfort [Unknown]
  - Nasal congestion [Unknown]
  - Headache [Unknown]
  - Musculoskeletal stiffness [Unknown]
  - Discomfort [Unknown]
  - Asthenia [Not Recovered/Not Resolved]
  - Drug monitoring procedure not performed [Unknown]
